FAERS Safety Report 5334895-4 (Version None)
Quarter: 2007Q1

REPORT INFORMATION
  Report Type: 
  Country: None (occurrence: None)
  Receive Date: 20070308
  Receipt Date: 20070104
  Transmission Date: 20070707
  Serious: No
  Sender: FDA-Public Use
  Company Number: 2007-BP-00156BP

PATIENT
  Age: 78 Year
  Sex: Male

DRUGS (11)
  1. SPIRIVA [Suspect]
     Indication: EMPHYSEMA
     Dosage: 18 MCG (18 MCG, 1 IN 1 D) IH
     Route: 055
     Dates: start: 20050901
  2. FORADIL [Concomitant]
  3. ASMANEX TWISTHALER [Concomitant]
  4. OMEPRAZOLE [Concomitant]
  5. METOPROLOL TARTRATE [Concomitant]
  6. ALDACTAZIDE (ALDACTAZIDE A) [Concomitant]
  7. POTASSIUM (POTASSIUM) [Concomitant]
  8. LISINOPRIL [Concomitant]
  9. CLOPIDOGREL [Concomitant]
  10. TERAZOSIN HCL [Concomitant]
  11. FIBASTERASTER (ALL OTHER THERAPEUTIC PRODUCTS) [Concomitant]

REACTIONS (2)
  - DIZZINESS [None]
  - DRUG INEFFECTIVE [None]
